FAERS Safety Report 15209816 (Version 2)
Quarter: 2019Q1

REPORT INFORMATION
  Report Type: Report from Study
  Country: JP (occurrence: JP)
  Receive Date: 20180727
  Receipt Date: 20190211
  Transmission Date: 20190417
  Serious: Yes (Other)
  Sender: FDA-Public Use
  Company Number: JP-PFIZER INC-2018302720

PATIENT

DRUGS (4)
  1. VINBLASTINE [Suspect]
     Active Substance: VINBLASTINE
     Indication: BLADDER CANCER
     Dosage: 3 MG/M2, EVERY 3 WEEKS (ON DAY 2) (1-4 COURSES OF TRI-WEEKLY)
  2. CISPLATIN. [Suspect]
     Active Substance: CISPLATIN
     Indication: BLADDER CANCER
     Dosage: 70 MG/M2, EVERY 3 WEEKS (ON DAY 2) (1-4 COURSES OF TRI-WEEKLY)
  3. METHOTREXATE SODIUM. [Suspect]
     Active Substance: METHOTREXATE SODIUM
     Indication: BLADDER CANCER
     Dosage: 30 MG/M2, EVERY 3 WEEKS (1-4 COURSES OF TRI-WEEKLY ON DAY 1)
  4. DOXORUBICIN HCL [Suspect]
     Active Substance: DOXORUBICIN HYDROCHLORIDE
     Indication: BLADDER CANCER
     Dosage: 30 MG/M2, EVERY 3 WEEKS (ON DAY 2) (1-4 COURSES OF TRI-WEEKLY)

REACTIONS (1)
  - Anaemia [Unknown]
